FAERS Safety Report 16446516 (Version 1)
Quarter: 2019Q2

REPORT INFORMATION
  Report Type: Spontaneous
  Country: FR (occurrence: FR)
  Receive Date: 20190618
  Receipt Date: 20190618
  Transmission Date: 20190711
  Serious: Yes (Other)
  Sender: FDA-Public Use
  Company Number: FR-PFIZER INC-2019255515

PATIENT
  Sex: Male

DRUGS (2)
  1. LORVIQUA (LORLATINIB) [Suspect]
     Active Substance: LORLATINIB
     Dosage: 3 DF, DAILY
  2. LORVIQUA (LORLATINIB) [Suspect]
     Active Substance: LORLATINIB
     Dosage: 4 DF, DAILY

REACTIONS (2)
  - Enteritis [Unknown]
  - Diarrhoea [Unknown]
